FAERS Safety Report 21217852 (Version 1)
Quarter: 2022Q3

REPORT INFORMATION
  Report Type: Other
  Country: US (occurrence: None)
  Receive Date: 20220816
  Receipt Date: 20220816
  Transmission Date: 20221026
  Serious: No
  Sender: FDA-Public Use
  Company Number: US-ROCHE-3012883

PATIENT
  Age: 76 Year
  Sex: Male

DRUGS (2)
  1. PEGINTERFERON ALFA-2A [Suspect]
     Active Substance: PEGINTERFERON ALFA-2A
     Indication: Peripheral T-cell lymphoma unspecified
     Route: 065
  2. MOGAMULIZUMAB KPKC [Concomitant]
     Indication: Peripheral T-cell lymphoma unspecified

REACTIONS (1)
  - Drug intolerance [Unknown]
